FAERS Safety Report 4951312-4 (Version None)
Quarter: 2006Q1

REPORT INFORMATION
  Report Type: 
  Country: None (occurrence: None)
  Receive Date: 20060317
  Receipt Date: 20060308
  Transmission Date: 20060701
  Serious: Yes (Hospitalization, Other)
  Sender: FDA-Public Use
  Company Number: GXKR2006FR01380

PATIENT
  Age: 52 Year
  Sex: Female

DRUGS (6)
  1. BISOPROLOL [Suspect]
     Dosage: 1.25 MG, QD
  2. CARVEDILOL [Suspect]
     Dosage: 6.25 MG
  3. SPIRONOLACTONE [Concomitant]
  4. FUROSEMIDE [Concomitant]
  5. FLUINDIONE (FLUINDIONE) [Concomitant]
  6. ENALAPRIL MALEATE [Concomitant]

REACTIONS (4)
  - BLOOD CREATININE INCREASED [None]
  - BLOOD PRESSURE DECREASED [None]
  - CARDIAC FAILURE [None]
  - CONDITION AGGRAVATED [None]
